FAERS Safety Report 14056255 (Version 1)
Quarter: 2017Q4

REPORT INFORMATION
  Report Type: Spontaneous
  Country: CN (occurrence: CN)
  Receive Date: 20171006
  Receipt Date: 20171006
  Transmission Date: 20180321
  Serious: Yes (Other)
  Sender: FDA-Public Use
  Company Number: CN-MERCK KGAA-2029019

PATIENT

DRUGS (1)
  1. NOVOTHYROX [Suspect]
     Active Substance: LEVOTHYROXINE SODIUM
     Indication: POST PROCEDURAL HYPOTHYROIDISM
     Route: 048

REACTIONS (9)
  - Thyroid cancer [Unknown]
  - Drug dose omission [Unknown]
  - Weight increased [Recovering/Resolving]
  - Blood pressure fluctuation [Unknown]
  - Swelling face [Unknown]
  - Thyroid mass [Unknown]
  - Somnolence [Unknown]
  - Constipation [Unknown]
  - Abdominal distension [Unknown]
